FAERS Safety Report 8100166 (Version 6)
Quarter: 2013Q4

REPORT INFORMATION
  Report Type: Spontaneous
  Country: US (occurrence: US)
  Receive Date: 20110822
  Receipt Date: 20131115
  Transmission Date: 20140711
  Serious: Yes (Death, Hospitalization)
  Sender: FDA-Public Use
  Company Number: US-GLAXOSMITHKLINE-A0915579A

PATIENT
  Age: 80 Year
  Sex: Female
  Weight: 95 kg

DRUGS (1)
  1. AVANDIA [Suspect]
     Indication: DIABETES MELLITUS
     Dosage: 4MG PER DAY
     Route: 048
     Dates: start: 200208, end: 200505

REACTIONS (8)
  - Cerebrovascular accident [Fatal]
  - Ischaemic cardiomyopathy [Unknown]
  - Cardiac failure congestive [Fatal]
  - Cerebrovascular disorder [Unknown]
  - Sepsis [Fatal]
  - Coronary artery disease [Unknown]
  - Hypertension [Fatal]
  - Arteriosclerosis coronary artery [Unknown]
